FAERS Safety Report 19217275 (Version 1)
Quarter: 2021Q2

REPORT INFORMATION
  Report Type: Spontaneous
  Country: US (occurrence: US)
  Receive Date: 20210505
  Receipt Date: 20210505
  Transmission Date: 20210717
  Serious: Yes (Other)
  Sender: FDA-Public Use
  Company Number: None

PATIENT
  Age: 94 Year
  Sex: Male
  Weight: 65.25 kg

DRUGS (1)
  1. LUPRON [Suspect]
     Active Substance: LEUPROLIDE ACETATE
     Indication: PROSTATE CANCER
     Dates: start: 20180221, end: 20180530

REACTIONS (4)
  - Fatigue [None]
  - Hallucination [None]
  - Confusional state [None]
  - Dementia [None]

NARRATIVE: CASE EVENT DATE: 20180530
